FAERS Safety Report 10201798 (Version 1)
Quarter: 2014Q2

REPORT INFORMATION
  Report Type: Spontaneous
  Country: US (occurrence: US)
  Receive Date: 20140528
  Receipt Date: 20140528
  Transmission Date: 20141212
  Serious: Yes (Death)
  Sender: FDA-Public Use
  Company Number: US-SA-2014SA066820

PATIENT
  Sex: 0

DRUGS (1)
  1. FLUDARABINE PHOSPHATE [Suspect]
     Indication: STEM CELL TRANSPLANT
     Dosage: 2GY TBI
     Route: 065

REACTIONS (2)
  - Multi-organ failure [Fatal]
  - Off label use [Fatal]
